FAERS Safety Report 24530683 (Version 3)
Quarter: 2025Q2

REPORT INFORMATION
  Report Type: Spontaneous
  Country: BE (occurrence: BE)
  Receive Date: 20241021
  Receipt Date: 20250523
  Transmission Date: 20250716
  Serious: Yes (Death, Other)
  Sender: NOVARTIS
  Company Number: BE-CHEPLA-2024013033

PATIENT
  Age: 16 Year
  Sex: Male

DRUGS (17)
  1. AZATHIOPRINE [Suspect]
     Active Substance: AZATHIOPRINE
     Indication: Immunosuppressant drug therapy
     Route: 048
  2. TACROLIMUS [Suspect]
     Active Substance: TACROLIMUS
     Indication: Immunosuppressant drug therapy
     Route: 065
  3. TACROLIMUS [Suspect]
     Active Substance: TACROLIMUS
     Route: 065
  4. IMURAN [Suspect]
     Active Substance: AZATHIOPRINE
     Indication: Immunosuppressant drug therapy
     Dosage: 50 MG, QD ( BETWEEN DAYS 257-332 POST-TRANSPLANT)
     Route: 042
  5. METHYLPREDNISOLONE [Suspect]
     Active Substance: METHYLPREDNISOLONE
     Indication: Immunosuppressant drug therapy
     Route: 048
  6. METHYLPREDNISOLONE [Suspect]
     Active Substance: METHYLPREDNISOLONE
     Route: 065
  7. METHYLPREDNISOLONE [Suspect]
     Active Substance: METHYLPREDNISOLONE
     Route: 048
  8. METHYLPREDNISOLONE [Suspect]
     Active Substance: METHYLPREDNISOLONE
     Route: 048
  9. METHYLPREDNISOLONE [Suspect]
     Active Substance: METHYLPREDNISOLONE
     Indication: Immunosuppressant drug therapy
     Route: 042
  10. BASILIXIMAB [Concomitant]
     Active Substance: BASILIXIMAB
     Indication: Immunosuppressant drug therapy
     Route: 065
  11. BASILIXIMAB [Concomitant]
     Active Substance: BASILIXIMAB
     Route: 065
  12. BASILIXIMAB [Concomitant]
     Active Substance: BASILIXIMAB
     Route: 065
  13. VALGANCICLOVIR [Concomitant]
     Active Substance: VALGANCICLOVIR
     Indication: Antiviral prophylaxis
     Route: 065
  14. VALGANCICLOVIR [Concomitant]
     Active Substance: VALGANCICLOVIR
     Indication: Prophylaxis
     Route: 065
  15. GANCICLOVIR [Concomitant]
     Active Substance: GANCICLOVIR
     Indication: Antiviral prophylaxis
     Dosage: 5 MG/KG, BID (ON D 0-15, INTERVAL - 0.5 D)
     Route: 065
  16. GANCICLOVIR [Concomitant]
     Active Substance: GANCICLOVIR
     Indication: Prophylaxis
  17. HUMAN CYTOMEGALOVIRUS IMMUNE GLOBULIN [Concomitant]
     Active Substance: HUMAN CYTOMEGALOVIRUS IMMUNE GLOBULIN
     Indication: Prophylaxis
     Route: 065

REACTIONS (5)
  - Pulmonary thrombosis [Fatal]
  - Cytomegalovirus colitis [Recovered/Resolved]
  - Drug ineffective [Unknown]
  - Drug resistance [Unknown]
  - Cytomegalovirus infection [Unknown]
